FAERS Safety Report 8731580 (Version 3)
Quarter: 2012Q4

REPORT INFORMATION
  Report Type: 
  Country: JP (occurrence: JP)
  Receive Date: 20120820
  Receipt Date: 20121218
  Transmission Date: 20130627
  Serious: Yes (Other)
  Sender: FDA-Public Use
  Company Number: JP-JNJFOC-20120806013

PATIENT

DRUGS (1)
  1. DUROTEP MT [Suspect]
     Indication: CANCER PAIN
     Route: 062

REACTIONS (2)
  - Electroencephalogram abnormal [Unknown]
  - Withdrawal syndrome [Recovered/Resolved]
